FAERS Safety Report 11556987 (Version 1)
Quarter: 2015Q3

REPORT INFORMATION
  Report Type: Spontaneous
  Country: US (occurrence: US)
  Receive Date: 20150916
  Receipt Date: 20150916
  Transmission Date: 20151125
  Serious: No
  Sender: FDA-Public Use
  Company Number: US-ELI_LILLY_AND_COMPANY-US200806004557

PATIENT
  Sex: Female

DRUGS (3)
  1. FORTEO [Suspect]
     Active Substance: TERIPARATIDE
     Indication: OSTEOPENIA
     Dosage: UNK, UNK
     Dates: start: 2008
  2. FORTEO [Suspect]
     Active Substance: TERIPARATIDE
  3. CORTISONE [Concomitant]
     Active Substance: CORTISONE\HYDROCORTISONE

REACTIONS (10)
  - Injection site erythema [Unknown]
  - Anxiety [Unknown]
  - Injection site pain [Unknown]
  - Crying [Not Recovered/Not Resolved]
  - Nonspecific reaction [Unknown]
  - Headache [Not Recovered/Not Resolved]
  - Injection site nodule [Unknown]
  - Pain in extremity [Not Recovered/Not Resolved]
  - Insomnia [Not Recovered/Not Resolved]
  - Nervousness [Not Recovered/Not Resolved]

NARRATIVE: CASE EVENT DATE: 2008
